FAERS Safety Report 15395151 (Version 1)
Quarter: 2018Q3

REPORT INFORMATION
  Report Type: Spontaneous
  Country: US (occurrence: US)
  Receive Date: 20180911
  Receipt Date: 20180911
  Transmission Date: 20181010
  Serious: No
  Sender: FDA-Public Use
  Company Number: None

PATIENT
  Age: 34 Year
  Sex: Female

DRUGS (1)
  1. ORKAMBI [Suspect]
     Active Substance: IVACAFTOR\LUMACAFTOR
     Indication: CYSTIC FIBROSIS
     Dates: start: 201802, end: 201803

REACTIONS (3)
  - Dyspnoea [None]
  - Chest discomfort [None]
  - Lung disorder [None]

NARRATIVE: CASE EVENT DATE: 20180201
